FAERS Safety Report 14661201 (Version 1)
Quarter: 2018Q1

REPORT INFORMATION
  Report Type: Spontaneous
  Country: US (occurrence: US)
  Receive Date: 20180320
  Receipt Date: 20180320
  Transmission Date: 20180509
  Serious: No
  Sender: FDA-Public Use
  Company Number: US-ELI_LILLY_AND_COMPANY-US201803007068

PATIENT
  Age: 40 Year
  Sex: Female

DRUGS (2)
  1. TRULICITY [Suspect]
     Active Substance: DULAGLUTIDE
     Dosage: 1.5 MG, WEEKLY (1/W)
     Route: 058
     Dates: start: 20180315
  2. TRULICITY [Suspect]
     Active Substance: DULAGLUTIDE
     Indication: GLYCOSYLATED HAEMOGLOBIN INCREASED
     Dosage: 0.75 MG, WEEKLY (1/W)
     Route: 058
     Dates: start: 201712

REACTIONS (5)
  - Injection site pain [Unknown]
  - Injection site haemorrhage [Recovered/Resolved]
  - Off label use [Unknown]
  - Underdose [Unknown]
  - Incorrect dose administered [Unknown]

NARRATIVE: CASE EVENT DATE: 201702
